FAERS Safety Report 5566479-7 (Version None)
Quarter: 2007Q4

REPORT INFORMATION
  Report Type: 
  Country: None (occurrence: None)
  Receive Date: 20071219
  Receipt Date: 20071217
  Transmission Date: 20080405
  Serious: Yes (Other)
  Sender: FDA-Public Use
  Company Number: JP-BRISTOL-MYERS SQUIBB COMPANY-14016521

PATIENT
  Age: 22 Year
  Sex: Male

DRUGS (3)
  1. ETOPOSIDE [Suspect]
     Indication: GERM CELL CANCER
     Dosage: ADMINISTERED ON DAYS 1 TO 5
  2. CISPLATIN [Suspect]
     Indication: GERM CELL CANCER
     Dosage: ADMINISTERED ON DAYS 1 TO 5
  3. BLEOMYCIN SULFATE [Suspect]
     Indication: GERM CELL CANCER

REACTIONS (3)
  - PROSTATIC ABSCESS [None]
  - PYREXIA [None]
  - WHITE BLOOD CELL COUNT DECREASED [None]
